FAERS Safety Report 9214573 (Version 1)
Quarter: 2013Q2

REPORT INFORMATION
  Report Type: Spontaneous
  Country: DE (occurrence: None)
  Receive Date: 20130402
  Receipt Date: 20130402
  Transmission Date: 20140414
  Serious: Yes (Death)
  Sender: FDA-Public Use
  Company Number: GER/GER/13/0028769

PATIENT
  Age: 63 Year
  Sex: Female
  Weight: 60 kg

DRUGS (5)
  1. METFORMIN [Suspect]
     Indication: TYPE 2 DIABETES MELLITUS
     Route: 048
  2. ASS [Concomitant]
  3. EFIENT [Concomitant]
  4. INSPRA [Concomitant]
  5. CONCOR [Concomitant]

REACTIONS (5)
  - Metabolic acidosis [None]
  - Renal failure acute [None]
  - Shock [None]
  - Multi-organ failure [None]
  - Dialysis [None]
